FAERS Safety Report 5993286-3 (Version None)
Quarter: 2008Q4

REPORT INFORMATION
  Report Type: 
  Country: None (occurrence: None)
  Receive Date: 20081210
  Receipt Date: 20081210
  Transmission Date: 20090506
  Serious: No
  Sender: FDA-Public Use
  Company Number: None

PATIENT
  Age: 59 Year
  Sex: Male
  Weight: 59.4212 kg

DRUGS (1)
  1. CRESTOR [Suspect]
     Indication: LOW DENSITY LIPOPROTEIN INCREASED
     Dosage: ONE TABLET THREE TIMES A WEEK PO  (DURATION: LAST 12-18 MONTHS)
     Route: 048

REACTIONS (2)
  - PANCREATITIS ACUTE [None]
  - TINNITUS [None]
